FAERS Safety Report 18645340 (Version 11)
Quarter: 2024Q2

REPORT INFORMATION
  Report Type: Spontaneous
  Country: US (occurrence: US)
  Receive Date: 20201221
  Receipt Date: 20240618
  Transmission Date: 20240716
  Serious: No
  Sender: FDA-Public Use
  Company Number: US-PFIZER INC-2020318118

PATIENT
  Age: 61 Year
  Sex: Male
  Weight: 85.578 kg

DRUGS (1)
  1. XELJANZ [Suspect]
     Active Substance: TOFACITINIB CITRATE
     Indication: Ankylosing spondylitis
     Dosage: 5 MG

REACTIONS (9)
  - Gastrointestinal disorder [Unknown]
  - Mobility decreased [Not Recovered/Not Resolved]
  - COVID-19 [Unknown]
  - Arthritis [Unknown]
  - Feeling abnormal [Unknown]
  - Depressed mood [Unknown]
  - Joint swelling [Unknown]
  - Skin plaque [Unknown]
  - Rash [Unknown]
